FAERS Safety Report 14017610 (Version 1)
Quarter: 2017Q3

REPORT INFORMATION
  Report Type: Spontaneous
  Country: US (occurrence: US)
  Receive Date: 20170927
  Receipt Date: 20170927
  Transmission Date: 20171128
  Serious: No
  Sender: FDA-Public Use
  Company Number: US-DEPOMED, INC.-US-2017DEP001318

PATIENT

DRUGS (4)
  1. DULOXETINE HCL [Concomitant]
     Active Substance: DULOXETINE HYDROCHLORIDE
     Indication: ANXIETY
     Dosage: TAKE A FEW HOURS AFTER GRALISE (7PM OR LATER)
     Dates: start: 201704
  2. LEVOTHYROXINE. [Concomitant]
     Active Substance: LEVOTHYROXINE
     Indication: THYROID DISORDER
     Dosage: WITH PLENTY OF WATER ON AN EMPTY STOMACH (DO NOT EAT FOR 30 MINUTE AFTER TAKING)
  3. GRALISE [Suspect]
     Active Substance: GABAPENTIN
     Indication: POST HERPETIC NEURALGIA
     Dosage: FOLLOW PACKAGE DIRECTIONS AND TAKE WITH EVENING MEAL
     Route: 048
     Dates: start: 20170613
  4. VALSARTAN. [Concomitant]
     Active Substance: VALSARTAN
     Indication: HYPERTENSION
     Dosage: EVERY MORNING WITH BREAKFAST
     Route: 048
     Dates: start: 2015

REACTIONS (4)
  - Abnormal loss of weight [Not Recovered/Not Resolved]
  - Drug effect decreased [Not Recovered/Not Resolved]
  - Tremor [Not Recovered/Not Resolved]
  - Nausea [Not Recovered/Not Resolved]

NARRATIVE: CASE EVENT DATE: 201706
